FAERS Safety Report 23677395 (Version 1)
Quarter: 2024Q1

REPORT INFORMATION
  Report Type: Spontaneous
  Country: US (occurrence: None)
  Receive Date: 20240326
  Receipt Date: 20240326
  Transmission Date: 20240410
  Serious: Yes (Hospitalization)
  Sender: FDA-Public Use
  Company Number: None

PATIENT
  Age: 55 Year
  Sex: Female
  Weight: 71.8 kg

DRUGS (9)
  1. BELATACEPT [Suspect]
     Active Substance: BELATACEPT
     Indication: Renal transplant
     Dosage: OTHER FREQUENCY : MONTHLY;?
     Route: 042
  2. XANAX [Concomitant]
     Active Substance: ALPRAZOLAM
  3. NORVASC [Concomitant]
     Active Substance: AMLODIPINE BESYLATE
  4. LIPITOR [Concomitant]
     Active Substance: ATORVASTATIN CALCIUM
  5. ergocalciferol (DRISDOL) [Concomitant]
  6. LISINOPRIL [Concomitant]
     Active Substance: LISINOPRIL
  7. Mounjaro 5 mg/0.5 mL pen injector [Concomitant]
  8. mycophenolate (Cellcept) [Concomitant]
  9. Toujeo Max U-300 SoloStar [Concomitant]

REACTIONS (3)
  - Diabetic foot [None]
  - Osteomyelitis [None]
  - Amputation [None]

NARRATIVE: CASE EVENT DATE: 20231230
